FAERS Safety Report 11507309 (Version 1)
Quarter: 2015Q3

REPORT INFORMATION
  Report Type: Spontaneous
  Country: US (occurrence: None)
  Receive Date: 20150914
  Receipt Date: 20150914
  Transmission Date: 20151125
  Serious: Yes (Disabling, Other)
  Sender: FDA-Public Use
  Company Number: None

PATIENT
  Age: 42 Year
  Sex: Female
  Weight: 58.97 kg

DRUGS (5)
  1. CYMBALTA [Suspect]
     Active Substance: DULOXETINE HYDROCHLORIDE
     Indication: NEURALGIA
     Dosage: 1/3 OF ONE CAPSULE DAILY
     Route: 048
     Dates: start: 20130201, end: 20150911
  2. MULTI-VITAMIN [Concomitant]
     Active Substance: .ALPHA.-TOCOPHEROL ACETATE, DL-\ASCORBIC ACID\CYANOCOBALAMIN\FLUORIDE ION\FOLIC ACID\NIACIN\PYRIDOXINE\RIBOFLAVIN\THIAMINE\VITAMIN A\VITAMIN D
  3. IUD NOS [Concomitant]
     Active Substance: COPPER OR LEVONORGESTREL
  4. IBUPROFEN 800 [Concomitant]
  5. TRIAMTERINE [Concomitant]

REACTIONS (5)
  - Fatigue [None]
  - Depression [None]
  - Sexual dysfunction [None]
  - Withdrawal syndrome [None]
  - Suicidal ideation [None]

NARRATIVE: CASE EVENT DATE: 20150913
